FAERS Safety Report 22272418 (Version 1)
Quarter: 2023Q2

REPORT INFORMATION
  Report Type: Spontaneous
  Country: CL (occurrence: CL)
  Receive Date: 20230502
  Receipt Date: 20230502
  Transmission Date: 20230722
  Serious: Yes (Death)
  Sender: FDA-Public Use
  Company Number: CL-ROCHE-3301638

PATIENT
  Age: 47 Year
  Sex: Female

DRUGS (2)
  1. CAPECITABINE [Suspect]
     Active Substance: CAPECITABINE
     Indication: Breast cancer
     Dosage: DAILY DOSE OF SUSPECTED MEDICINAL PRODUCT: XELODA: 3500 MG /D?ONCE PER 3 WEEKS
     Dates: start: 20221031, end: 20221111
  2. LETROZOLE [Suspect]
     Active Substance: LETROZOLE
     Indication: Breast cancer
     Dosage: DAILY DOSE: 450 MILLIGRAM
     Route: 048
     Dates: start: 20220510

REACTIONS (4)
  - Abdominal pain [Fatal]
  - Vomiting [Fatal]
  - Septic shock [Fatal]
  - Hypovolaemic shock [Fatal]

NARRATIVE: CASE EVENT DATE: 20221105
